FAERS Safety Report 12965987 (Version 2)
Quarter: 2016Q4

REPORT INFORMATION
  Report Type: Spontaneous
  Country: US (occurrence: US)
  Receive Date: 20161122
  Receipt Date: 20161201
  Transmission Date: 20170207
  Serious: Yes (Hospitalization)
  Sender: FDA-Public Use
  Company Number: US-RARE DISEASE THERAPEUTICS, INC.-1059957

PATIENT
  Age: 6 Year
  Sex: Male
  Weight: 19.05 kg

DRUGS (5)
  1. CYSTADANE [Suspect]
     Active Substance: BETAINE
     Indication: VITAMIN B12 DEFICIENCY
     Dates: start: 20140821
  2. VITAMIN B12 / CYANOCOBALAMIN [Concomitant]
  3. PROPIMEX-2 [Concomitant]
  4. LEVOCARNITINE. [Concomitant]
     Active Substance: LEVOCARNITINE
  5. VITAMIN D [Concomitant]
     Active Substance: CHOLECALCIFEROL

REACTIONS (2)
  - Overdose [Unknown]
  - Upper respiratory tract infection [Recovered/Resolved]

NARRATIVE: CASE EVENT DATE: 20161029
